FAERS Safety Report 4363249-2 (Version None)
Quarter: 2004Q2

REPORT INFORMATION
  Report Type: 
  Country: None (occurrence: None)
  Receive Date: 20040518
  Receipt Date: 20040511
  Transmission Date: 20050107
  Serious: Yes (Life-Threatening)
  Sender: FDA-Public Use
  Company Number: 2004CG00913

PATIENT
  Age: 80 Year
  Sex: Female

DRUGS (4)
  1. ARIMIDEX [Suspect]
     Indication: BREAST CANCER
     Dosage: 1 MG DAILY PO
     Route: 048
     Dates: start: 20040510, end: 20040510
  2. ROCEPHIN [Suspect]
     Dosage: 1 G QD
     Dates: start: 20040510, end: 20040510
  3. CACIT [Suspect]
     Dates: start: 20040510, end: 20040510
  4. VITAMIN K TAB [Suspect]
     Dates: start: 20040510, end: 20040510

REACTIONS (1)
  - ANGIONEUROTIC OEDEMA [None]
